FAERS Safety Report 4521354-1 (Version None)
Quarter: 2004Q4

REPORT INFORMATION
  Report Type: 
  Country: None (occurrence: None)
  Receive Date: 20041029
  Receipt Date: 20040806
  Transmission Date: 20050328
  Serious: No
  Sender: FDA-Public Use
  Company Number: 2004-119279-NL

PATIENT
  Age: 4 Month
  Sex: Female

DRUGS (2)
  1. NUVARING [Suspect]
     Indication: DRUG EXPOSURE DURING PREGNANCY
     Dates: start: 20040711
  2. PRENATAL VITAMINS [Concomitant]

REACTIONS (2)
  - HUNGER [None]
  - INSOMNIA [None]
